FAERS Safety Report 17009555 (Version 1)
Quarter: 2019Q4

REPORT INFORMATION
  Report Type: Spontaneous
  Country: US (occurrence: US)
  Receive Date: 20190930
  Receipt Date: 20190930
  Transmission Date: 20200122
  Serious: No
  Sender: FDA-Public Use
  Company Number: None

PATIENT
  Age: 19 Year
  Sex: Male

DRUGS (1)
  1. RECOMBINATE [Suspect]
     Active Substance: ANTIHEMOPHILIC FACTOR, HUMAN RECOMBINANT
     Dosage: ?          OTHER DOSE:1876;OTHER FREQUENCY:OTHER;?
     Route: 041
     Dates: start: 201906

REACTIONS (1)
  - Contusion [None]

NARRATIVE: CASE EVENT DATE: 20190930
